FAERS Safety Report 21224876 (Version 1)
Quarter: 2022Q3

REPORT INFORMATION
  Report Type: Spontaneous
  Country: US (occurrence: US)
  Receive Date: 20220817
  Receipt Date: 20220817
  Transmission Date: 20221027
  Serious: Yes (Hospitalization, Other)
  Sender: FDA-Public Use
  Company Number: US-OTSUKA-2021_040778

PATIENT
  Age: 24 Year
  Sex: Male

DRUGS (2)
  1. ABILIFY MAINTENA [Suspect]
     Active Substance: ARIPIPRAZOLE
     Indication: Schizophrenia
     Dosage: 300 MG
     Route: 065
  2. ABILIFY MAINTENA [Suspect]
     Active Substance: ARIPIPRAZOLE
     Indication: Bipolar I disorder
     Dosage: 800 MG
     Route: 065
     Dates: start: 20211119

REACTIONS (7)
  - Substance abuse [Unknown]
  - Tremor [Unknown]
  - Injection site pain [Unknown]
  - Weight increased [Unknown]
  - Overdose [Unknown]
  - Therapeutic response decreased [Unknown]
  - Underdose [Unknown]

NARRATIVE: CASE EVENT DATE: 20211119
